FAERS Safety Report 6902661-1 (Version None)
Quarter: 2010Q3

REPORT INFORMATION
  Report Type: 
  Country: None (occurrence: None)
  Receive Date: 20100803
  Receipt Date: 20080616
  Transmission Date: 20110219
  Serious: No
  Sender: FDA-Public Use
  Company Number: US-PFIZER INC-2008050955

PATIENT
  Sex: Female
  Weight: 56.7 kg

DRUGS (3)
  1. LYRICA [Suspect]
     Indication: BURNING SENSATION
     Route: 048
     Dates: start: 20080501, end: 20080601
  2. ATENOLOL [Concomitant]
  3. FENTANYL CITRATE [Concomitant]

REACTIONS (2)
  - RASH [None]
  - URTICARIA [None]
